FAERS Safety Report 13802139 (Version 1)
Quarter: 2017Q3

REPORT INFORMATION
  Report Type: Spontaneous
  Country: US (occurrence: US)
  Receive Date: 20170727
  Receipt Date: 20170727
  Transmission Date: 20171127
  Serious: No
  Sender: FDA-Public Use
  Company Number: None

PATIENT
  Age: 19 Year
  Sex: Female
  Weight: 65.25 kg

DRUGS (2)
  1. XANAX [Suspect]
     Active Substance: ALPRAZOLAM
     Indication: ANXIETY
     Route: 048
  2. XANAX [Suspect]
     Active Substance: ALPRAZOLAM
     Indication: DIARRHOEA
     Route: 048

REACTIONS (9)
  - Chest discomfort [None]
  - Tinnitus [None]
  - Heart rate increased [None]
  - Abdominal discomfort [None]
  - Vomiting [None]
  - Balance disorder [None]
  - Drug interaction [None]
  - Coordination abnormal [None]
  - Vision blurred [None]

NARRATIVE: CASE EVENT DATE: 20170725
